FAERS Safety Report 9007810 (Version 1)
Quarter: 2013Q1

REPORT INFORMATION
  Report Type: Spontaneous
  Country: CA (occurrence: CA)
  Receive Date: 20130111
  Receipt Date: 20130111
  Transmission Date: 20140127
  Serious: Yes (Hospitalization)
  Sender: FDA-Public Use
  Company Number: CA-AMGEN-CANSP2013000365

PATIENT
  Age: 88 Year
  Sex: Female
  Weight: 56.82 kg

DRUGS (1)
  1. PROLIA [Suspect]
     Indication: OSTEOPOROSIS
     Dosage: UNK
     Dates: start: 20120625

REACTIONS (2)
  - Adverse event [Unknown]
  - Muscular weakness [Unknown]
